FAERS Safety Report 6311557-8 (Version None)
Quarter: 2009Q3

REPORT INFORMATION
  Report Type: 
  Country: None (occurrence: None)
  Receive Date: 20090817
  Receipt Date: 20090805
  Transmission Date: 20100115
  Serious: Yes (Other)
  Sender: FDA-Public Use
  Company Number: JP-PFIZER INC-2009251696

PATIENT
  Age: 62 Year

DRUGS (5)
  1. RIFABUTIN [Suspect]
     Indication: MYCOBACTERIUM AVIUM COMPLEX INFECTION
     Dosage: 450 MG, 1X/DAY
     Route: 048
     Dates: start: 20090615, end: 20090628
  2. PRULIFLOXACIN [Suspect]
     Route: 048
     Dates: start: 20090615, end: 20090621
  3. CLARITH [Suspect]
     Route: 048
     Dates: start: 20090615, end: 20090629
  4. RIFADIN [Concomitant]
     Route: 048
     Dates: end: 20090101
  5. ZANTAC [Concomitant]
     Route: 048
     Dates: start: 20051214

REACTIONS (3)
  - DRUG ERUPTION [None]
  - DYSGEUSIA [None]
  - PYREXIA [None]
